FAERS Safety Report 7156034-X (Version None)
Quarter: 2010Q4

REPORT INFORMATION
  Report Type: 
  Country: None (occurrence: None)
  Receive Date: 20101214
  Receipt Date: 20101207
  Transmission Date: 20110411
  Serious: Yes (Death, Hospitalization, Other)
  Sender: FDA-Public Use
  Company Number: US-CELGENEUS-163-21880-10120771

PATIENT
  Age: 71 Year
  Sex: Female

DRUGS (7)
  1. REVLIMID [Suspect]
     Indication: MULTIPLE MYELOMA
     Route: 048
     Dates: start: 20100301, end: 20100101
  2. DECADRON [Concomitant]
     Route: 065
  3. LOSARTAN [Concomitant]
     Route: 065
  4. ZOFRAN [Concomitant]
     Route: 065
  5. HYDROCHLOROTHIAZIDE [Concomitant]
     Route: 065
  6. ASPIRIN [Concomitant]
     Route: 065
  7. FLONASE [Concomitant]
     Route: 065

REACTIONS (4)
  - ANAEMIA [None]
  - DEATH [None]
  - DIVERTICULITIS [None]
  - PANCYTOPENIA [None]
